FAERS Safety Report 6860739-5 (Version None)
Quarter: 2010Q3

REPORT INFORMATION
  Report Type: 
  Country: None (occurrence: None)
  Receive Date: 20100720
  Receipt Date: 20100712
  Transmission Date: 20110219
  Serious: Yes (Hospitalization)
  Sender: FDA-Public Use
  Company Number: GXKR2007GB03770

PATIENT
  Age: 58 Year
  Sex: Female

DRUGS (3)
  1. CO-CODAMOL (NGX) [Suspect]
     Indication: BACK PAIN
     Dosage: 1 DF, BID
     Route: 048
     Dates: start: 20070127, end: 20070128
  2. PARACETAMOL (NCH) [Suspect]
     Dosage: 1 G, QID
     Route: 048
  3. LEVOTHYROXINE SODIUM [Concomitant]
     Dosage: 75 UG
     Route: 048

REACTIONS (3)
  - AGITATION [None]
  - DRY MOUTH [None]
  - THIRST [None]
